FAERS Safety Report 5986521-9 (Version None)
Quarter: 2008Q4

REPORT INFORMATION
  Report Type: 
  Country: None (occurrence: None)
  Receive Date: 20081209
  Receipt Date: 20081103
  Transmission Date: 20090506
  Serious: No
  Sender: FDA-Public Use
  Company Number: US-BAYER-200837807NA

PATIENT
  Age: 43 Year
  Sex: Female
  Weight: 81 kg

DRUGS (2)
  1. MIRENA [Suspect]
     Indication: DRUG USE FOR UNKNOWN INDICATION
     Route: 015
     Dates: start: 20080901
  2. OGESTREL 0.5/50-21 [Concomitant]
     Indication: VAGINAL HAEMORRHAGE
     Dosage: TOTAL DAILY DOSE: 2  DF
     Route: 048

REACTIONS (1)
  - METRORRHAGIA [None]
